FAERS Safety Report 11084054 (Version 3)
Quarter: 2015Q2

REPORT INFORMATION
  Report Type: Other
  Country: JP (occurrence: JP)
  Receive Date: 20150501
  Receipt Date: 20150619
  Transmission Date: 20150821
  Serious: Yes (Hospitalization)
  Sender: FDA-Public Use
  Company Number: JP-SPECTRUM PHARMACEUTICALS, INC.-15-F-JP-00181

PATIENT
  Age: 67 Year
  Sex: Male
  Weight: 56 kg

DRUGS (6)
  1. PRALATREXATE [Suspect]
     Active Substance: PRALATREXATE
     Indication: PERIPHERAL T-CELL LYMPHOMA UNSPECIFIED
     Dosage: 30 MG/M2, SINGLE
     Route: 042
     Dates: start: 20150402, end: 20150402
  2. PRALATREXATE [Suspect]
     Active Substance: PRALATREXATE
     Dosage: 30 MG/M2, SINGLE
     Route: 042
     Dates: start: 20150415, end: 20150415
  3. IMIDAPRIL HYDROCHLORIDE [Concomitant]
     Active Substance: IMIDAPRIL HYDROCHLORIDE
     Indication: HYPERTENSION
     Dosage: 0.5 MG, QD
     Route: 048
     Dates: start: 199906
  4. METFORMIN [Concomitant]
     Active Substance: METFORMIN HYDROCHLORIDE
     Indication: DIABETES MELLITUS
     Dosage: 250 MG, BID
     Route: 048
     Dates: start: 201006
  5. PRALATREXATE [Suspect]
     Active Substance: PRALATREXATE
     Dosage: 30 MG/M2, SINGLE
     Route: 042
     Dates: start: 20150408, end: 20150408
  6. PANVITAN                           /00466101/ [Concomitant]
     Indication: PROPHYLAXIS
     Dosage: UNK, QD
     Route: 048
     Dates: start: 20150312, end: 20150517

REACTIONS (1)
  - Peritonitis [Recovered/Resolved]

NARRATIVE: CASE EVENT DATE: 20150410
